FAERS Safety Report 8909010 (Version 1)
Quarter: 2012Q4

REPORT INFORMATION
  Report Type: 
  Country: US (occurrence: US)
  Receive Date: 20121114
  Receipt Date: 20121114
  Transmission Date: 20130627
  Serious: No
  Sender: FDA-Public Use
  Company Number: US-MYLANLABS-2011S1025020

PATIENT
  Age: 61 Year
  Sex: Female
  Weight: 68.04 kg

DRUGS (5)
  1. NADOLOL [Suspect]
     Indication: ANGINA PECTORIS
     Route: 048
  2. NADOLOL [Suspect]
     Indication: HEART RATE ABNORMAL
     Route: 048
  3. ASPIRIN [Concomitant]
     Indication: ANTIPLATELET THERAPY
  4. ACYCLOVIR [Concomitant]
     Route: 048
     Dates: start: 2009
  5. CALCIUM [Concomitant]

REACTIONS (5)
  - Heart rate irregular [Not Recovered/Not Resolved]
  - Herpes ophthalmic [Recovered/Resolved]
  - Psoriasis [Not Recovered/Not Resolved]
  - Memory impairment [Not Recovered/Not Resolved]
  - Inappropriate schedule of drug administration [Not Recovered/Not Resolved]
